FAERS Safety Report 19952830 (Version 1)
Quarter: 2021Q4

REPORT INFORMATION
  Report Type: Spontaneous
  Country: US (occurrence: US)
  Receive Date: 20211013
  Receipt Date: 20211013
  Transmission Date: 20220304
  Serious: Yes (Hospitalization, Other)
  Sender: FDA-Public Use
  Company Number: None

PATIENT
  Age: 43 Year
  Sex: Female
  Weight: 80.24 kg

DRUGS (1)
  1. REGEN-COV [Suspect]
     Active Substance: CASIRIVIMAB\IMDEVIMAB
     Indication: COVID-19
     Dates: start: 20210911

REACTIONS (7)
  - Adverse drug reaction [None]
  - Flushing [None]
  - Chest discomfort [None]
  - Dizziness [None]
  - Dyspnoea [None]
  - Photopsia [None]
  - Anxiety [None]

NARRATIVE: CASE EVENT DATE: 20210911
